FAERS Safety Report 21653074 (Version 1)
Quarter: 2022Q4

REPORT INFORMATION
  Report Type: Spontaneous
  Country: JP (occurrence: JP)
  Receive Date: 20221128
  Receipt Date: 20221128
  Transmission Date: 20230113
  Serious: Yes (Death, Hospitalization, Other)
  Sender: FDA-Public Use
  Company Number: JP-GILEAD-2022-0606316

PATIENT
  Age: 57 Year
  Sex: Male

DRUGS (1)
  1. HARVONI [Suspect]
     Active Substance: LEDIPASVIR\SOFOSBUVIR
     Indication: Hepatitis C
     Dosage: UNK
     Route: 065

REACTIONS (4)
  - Tumour necrosis [Fatal]
  - Peritonitis [Fatal]
  - Hepatocellular carcinoma [Unknown]
  - Disseminated intravascular coagulation [Unknown]
